FAERS Safety Report 13557651 (Version 2)
Quarter: 2017Q3

REPORT INFORMATION
  Report Type: Spontaneous
  Country: KR (occurrence: KR)
  Receive Date: 20170518
  Receipt Date: 20170802
  Transmission Date: 20171127
  Serious: Yes (Other)
  Sender: FDA-Public Use
  Company Number: KR-009507513-1705KOR008386

PATIENT
  Age: 84 Year
  Sex: Female

DRUGS (28)
  1. LASIX [Concomitant]
     Active Substance: FUROSEMIDE
     Indication: DRUG TOXICITY PROPHYLAXIS
     Dosage: 20 MG, ONCE, STRENGTH: 20 MG/2 ML
     Route: 042
     Dates: start: 20160625, end: 20160625
  2. NORVASC [Concomitant]
     Active Substance: AMLODIPINE BESYLATE
     Indication: HYPERTENSION
     Dosage: 5 MG, QD
     Route: 048
     Dates: start: 20160621, end: 20160622
  3. DUROGESIC [Concomitant]
     Active Substance: FENTANYL
     Indication: CANCER PAIN
     Dosage: 1 PATCH, QD, STRENGTH: 25 IMCG/H 10.5 CM2
     Route: 062
     Dates: start: 20160617, end: 20160703
  4. NALOXONE (NALOXONE HYDROCHLORIDE) [Concomitant]
     Active Substance: NALOXONE HYDROCHLORIDE
     Indication: OVERDOSE
     Dosage: 0.5 MG, ONCE, STRENGTH: 2MG/2ML
     Route: 042
     Dates: start: 20160621, end: 20160621
  5. EMEND (FOSAPREPITANT DIMEGLUMINE) [Suspect]
     Active Substance: FOSAPREPITANT DIMEGLUMINE
     Indication: PROPHYLAXIS OF NAUSEA AND VOMITING
     Dosage: 150 MG, ONCE
     Route: 042
     Dates: start: 20160625, end: 20160625
  6. CALMTOP [Concomitant]
     Indication: NEOPLASM MALIGNANT
     Dosage: 60 MG, ONCE, CYCLE 1, STRENGTH: 40 MG/2 ML
     Route: 042
     Dates: start: 20160625, end: 20160625
  7. ATIVAN [Concomitant]
     Active Substance: LORAZEPAM
     Indication: PROPHYLAXIS
     Dosage: 0.5 MG, ONCE, STRENGTH: 4 MG/ML
     Route: 042
     Dates: start: 20160616, end: 20160616
  8. ULTRACET [Concomitant]
     Active Substance: ACETAMINOPHEN\TRAMADOL HYDROCHLORIDE
     Dosage: 1 TABLET, BID
     Route: 048
     Dates: start: 20160705
  9. TIROPA (TIROPRAMIDE HYDROCHLORIDE) [Concomitant]
     Indication: PROPHYLAXIS AGAINST DIARRHOEA
     Dosage: 50 MG, ONCE
     Route: 042
     Dates: start: 20160626, end: 20160626
  10. CISPLATIN. [Concomitant]
     Active Substance: CISPLATIN
     Indication: NEOPLASM MALIGNANT
     Dosage: 50 MG, ONCE, CYCLE 1, STRENGTH: 50 MG/ 100 ML
     Route: 042
     Dates: start: 20160625, end: 20160625
  11. MANNITOL. [Concomitant]
     Active Substance: MANNITOL
     Indication: DRUG TOXICITY PROPHYLAXIS
     Dosage: 100 ML, ONCE
     Route: 042
     Dates: start: 20160625, end: 20160625
  12. TIROPA (TIROPRAMIDE HYDROCHLORIDE) [Concomitant]
     Dosage: 50 MG, TID
     Route: 042
     Dates: start: 20160704
  13. QUETIAPINE FUMARATE. [Concomitant]
     Active Substance: QUETIAPINE FUMARATE
     Indication: DELIRIUM
     Dosage: 25 MG, QD
     Route: 048
     Dates: start: 20160621
  14. HALOPERIDOL. [Concomitant]
     Active Substance: HALOPERIDOL
     Indication: DELIRIUM
     Dosage: 1 MG, BID
     Route: 030
     Dates: start: 20160618
  15. TARGIN [Concomitant]
     Active Substance: NALOXONE HYDROCHLORIDE\OXYCODONE HYDROCHLORIDE
     Indication: CANCER PAIN
     Dosage: 1 TABLET, BID
     Route: 048
     Dates: start: 20160616, end: 20160616
  16. DEXAMETHASONE SODIUM PHOSPHATE. [Concomitant]
     Active Substance: DEXAMETHASONE SODIUM PHOSPHATE
     Indication: ANTIEMETIC SUPPORTIVE CARE
     Dosage: 12 MG, ONCE, STRENGTH: 5 MG/ML
     Route: 042
     Dates: start: 20160625, end: 20160625
  17. DEXAMETHASONE SODIUM PHOSPHATE. [Concomitant]
     Active Substance: DEXAMETHASONE SODIUM PHOSPHATE
     Dosage: 8 MG, ONCE, STRENGTH: 5 MG/ML
     Route: 042
     Dates: start: 20160626, end: 20160626
  18. DUPHALAC [Concomitant]
     Active Substance: LACTULOSE
     Indication: CONSTIPATION PROPHYLAXIS
     Dosage: 20 ML, TID
     Route: 048
     Dates: start: 20160620, end: 20160623
  19. ULTRACET [Concomitant]
     Active Substance: ACETAMINOPHEN\TRAMADOL HYDROCHLORIDE
     Indication: CANCER PAIN
     Dosage: 1 TABLET, BID
     Route: 048
     Dates: start: 20160620, end: 20160620
  20. CISPLATIN. [Concomitant]
     Active Substance: CISPLATIN
     Indication: NEOPLASM MALIGNANT
     Dosage: 17 MG, ONCE, CYCLE 1, STRENGTH: 10 MG/20 ML
     Route: 042
     Dates: start: 20160625, end: 20160625
  21. ALOXI [Concomitant]
     Active Substance: PALONOSETRON HYDROCHLORIDE
     Indication: ANTIEMETIC SUPPORTIVE CARE
     Dosage: 0.25 MG, ONCE
     Route: 042
     Dates: start: 20160625, end: 20160625
  22. TRIDOL (TRAMADOL HYDROCHLORIDE) [Concomitant]
     Indication: CANCER PAIN
     Dosage: 50 MG, BID, STRENGTH: 50 MG/ML
     Route: 042
     Dates: start: 20160616, end: 20160616
  23. DEXAMETHASONE SODIUM PHOSPHATE. [Concomitant]
     Active Substance: DEXAMETHASONE SODIUM PHOSPHATE
     Dosage: 8 MG, BID, STRENGTH: 5 MG/ML
     Route: 042
     Dates: start: 20160627, end: 20160628
  24. TRIDOL (TRAMADOL HYDROCHLORIDE) [Concomitant]
     Dosage: 50 MG, ONCE, STRENGTH: 50 MG/ML
     Route: 042
     Dates: start: 20160622, end: 20160622
  25. TRIDOL (TRAMADOL HYDROCHLORIDE) [Concomitant]
     Dosage: 50 MG, BID, STRENGTH: 50 MG/ML
     Route: 042
     Dates: start: 20160624, end: 20160706
  26. TARGIN [Concomitant]
     Active Substance: NALOXONE HYDROCHLORIDE\OXYCODONE HYDROCHLORIDE
     Indication: CANCER PAIN
     Dosage: 1 TABLET, BID
     Route: 048
     Dates: start: 20160617, end: 20160620
  27. DUPHALAC [Concomitant]
     Active Substance: LACTULOSE
     Dosage: 20 ML, TID
     Route: 048
     Dates: start: 20160701, end: 20160704
  28. TYLENOL [Concomitant]
     Active Substance: ACETAMINOPHEN
     Indication: CANCER PAIN
     Dosage: 650 MG, ONCE
     Route: 048
     Dates: start: 20160624, end: 20160624

REACTIONS (3)
  - Diarrhoea [Recovered/Resolved]
  - Nausea [Recovered/Resolved]
  - Cellulitis [Recovered/Resolved]

NARRATIVE: CASE EVENT DATE: 20160626
